FAERS Safety Report 23325292 (Version 1)
Quarter: 2023Q4

REPORT INFORMATION
  Report Type: Spontaneous
  Country: CN (occurrence: None)
  Receive Date: 20231221
  Receipt Date: 20231221
  Transmission Date: 20240110
  Serious: Yes (Hospitalization)
  Sender: FDA-Public Use
  Company Number: CN-ROCHE-3478461

PATIENT
  Age: 54 Year
  Sex: Female
  Weight: 51 kg

DRUGS (10)
  1. PERJETA [Suspect]
     Active Substance: PERTUZUMAB
     Indication: Neoplasm malignant
     Route: 041
     Dates: start: 20231115, end: 20231115
  2. HERCEPTIN [Suspect]
     Active Substance: TRASTUZUMAB
     Indication: Neoplasm malignant
     Route: 041
     Dates: start: 20231115, end: 20231115
  3. PACLITAXEL [Suspect]
     Active Substance: PACLITAXEL
     Indication: Neoplasm malignant
     Route: 041
     Dates: start: 20231116, end: 20231116
  4. DEXAMETHASONE SODIUM PHOSPHATE [Concomitant]
     Active Substance: DEXAMETHASONE PHOSPHATE\DEXAMETHASONE SODIUM PHOSPHATE
     Indication: Neoplasm malignant
     Route: 042
     Dates: start: 20231116, end: 20231116
  5. SODIUM CHLORIDE [Concomitant]
     Active Substance: SODIUM CHLORIDE
     Indication: Neoplasm malignant
     Route: 041
     Dates: start: 20231115, end: 20231115
  6. SODIUM CHLORIDE [Concomitant]
     Active Substance: SODIUM CHLORIDE
     Route: 042
     Dates: start: 20231116, end: 20231116
  7. SODIUM CHLORIDE [Concomitant]
     Active Substance: SODIUM CHLORIDE
     Route: 041
     Dates: start: 20231116, end: 20231116
  8. SODIUM CHLORIDE [Concomitant]
     Active Substance: SODIUM CHLORIDE
     Dosage: MANUFACTURER: SHIJIAZHUANG NO.4 PHARMACEUTICAL CO., LTD.; LOT NO.2307101301
     Route: 041
     Dates: start: 20231116, end: 20231116
  9. ONDANSETRON HYDROCHLORIDE [Concomitant]
     Active Substance: ONDANSETRON HYDROCHLORIDE
     Indication: Neoplasm malignant
     Route: 041
     Dates: start: 20231116, end: 20231116
  10. DIPHENHYDRAMINE HYDROCHLORIDE [Concomitant]
     Active Substance: DIPHENHYDRAMINE HYDROCHLORIDE
     Indication: Neoplasm malignant
     Route: 030
     Dates: start: 20231116, end: 20231116

REACTIONS (1)
  - Myelosuppression [Recovering/Resolving]

NARRATIVE: CASE EVENT DATE: 20231205
